FAERS Safety Report 9756741 (Version 1)
Quarter: 2013Q4

REPORT INFORMATION
  Report Type: Spontaneous
  Country: SG (occurrence: SG)
  Receive Date: 20131213
  Receipt Date: 20131213
  Transmission Date: 20140711
  Serious: Yes (Other)
  Sender: FDA-Public Use
  Company Number: SG-ABBVIE-13P-141-1179461-00

PATIENT
  Age: 58 Year
  Sex: Female

DRUGS (1)
  1. LIPANTHYL [Suspect]
     Indication: PRODUCT USED FOR UNKNOWN INDICATION

REACTIONS (2)
  - Pain [Unknown]
  - Lethargy [Unknown]
